FAERS Safety Report 6478794-3 (Version None)
Quarter: 2009Q4

REPORT INFORMATION
  Report Type: 
  Country: None (occurrence: None)
  Receive Date: 20091202
  Receipt Date: 20091117
  Transmission Date: 20100525
  Serious: Yes (Hospitalization, Other)
  Sender: FDA-Public Use
  Company Number: AUR-APL-2009-01184

PATIENT
  Age: 71 Year
  Sex: Female

DRUGS (10)
  1. METFORMIN HCL [Suspect]
     Indication: DIABETES MELLITUS
     Dosage: 1 GM, BID,
  2. GLICLAZIDE [Suspect]
     Indication: DIABETES MELLITUS
     Dosage: 80 MG, BID,
  3. ALLOPURINOL [Concomitant]
  4. ATENOLOL [Concomitant]
  5. ASPIRIN [Concomitant]
  6. BENDROFLUMETHIAZIDE [Concomitant]
  7. CLOPIDOGREL [Concomitant]
  8. DOXAZOSIN MESYLATE [Concomitant]
  9. IRBESARTAN [Concomitant]
  10. PERINDOPRIL [Concomitant]

REACTIONS (7)
  - DEHYDRATION [None]
  - FALL [None]
  - HYPOGLYCAEMIC COMA [None]
  - LACTIC ACIDOSIS [None]
  - LOWER RESPIRATORY TRACT INFECTION [None]
  - RENAL CYST [None]
  - RENAL FAILURE ACUTE [None]
